FAERS Safety Report 7129959-9 (Version None)
Quarter: 2010Q4

REPORT INFORMATION
  Report Type: 
  Country: None (occurrence: None)
  Receive Date: 20101130
  Receipt Date: 20100902
  Transmission Date: 20110411
  Serious: No
  Sender: FDA-Public Use
  Company Number: US-AMGEN-KDL435881

PATIENT

DRUGS (5)
  1. ARANESP [Suspect]
     Indication: CARDIAC FAILURE
     Dosage: 100 A?G, PRN
     Dates: start: 20100820
  2. GABAPENTIN [Concomitant]
     Dosage: UNK UNK, UNK
  3. METOLAZONE [Concomitant]
     Dosage: UNK UNK, UNK
  4. FUROSEMIDE [Concomitant]
     Dosage: UNK UNK, UNK
  5. SPIRONOLACTONE [Concomitant]
     Dosage: UNK UNK, UNK

REACTIONS (2)
  - FLUID RETENTION [None]
  - WEIGHT INCREASED [None]
